FAERS Safety Report 23281031 (Version 2)
Quarter: 2024Q1

REPORT INFORMATION
  Report Type: Spontaneous
  Country: US (occurrence: US)
  Receive Date: 20231211
  Receipt Date: 20240320
  Transmission Date: 20240410
  Serious: No
  Sender: FDA-Public Use
  Company Number: US-NOVEN PHARMACEUTICALS, INC.-2023-NOV-US001026

PATIENT
  Age: 76 Year
  Sex: Female
  Weight: 72.998 kg

DRUGS (1)
  1. ESTRADIOL [Suspect]
     Active Substance: ESTRADIOL
     Indication: Hormone replacement therapy
     Dosage: 0.1 MG, UNKNOWN
     Route: 062
     Dates: start: 1999

REACTIONS (4)
  - Balance disorder [Not Recovered/Not Resolved]
  - Craniocerebral injury [Unknown]
  - Concussion [Unknown]
  - Road traffic accident [Recovered/Resolved]

NARRATIVE: CASE EVENT DATE: 20120101
